FAERS Safety Report 6259676-9 (Version None)
Quarter: 2009Q3

REPORT INFORMATION
  Report Type: 
  Country: None (occurrence: None)
  Receive Date: 20090708
  Receipt Date: 20090703
  Transmission Date: 20100115
  Serious: Yes (Other)
  Sender: FDA-Public Use
  Company Number: JP-PFIZER INC-2009185625

PATIENT
  Age: 76 Year

DRUGS (6)
  1. VFEND [Suspect]
     Indication: ASPERGILLOSIS
     Dosage: 600 MG, 1X/DAY
     Route: 042
     Dates: start: 20090313, end: 20090313
  2. VFEND [Suspect]
     Dosage: 400 MG, 1X/DAY
     Route: 042
     Dates: start: 20090314, end: 20090317
  3. MAXIPIME [Concomitant]
     Route: 042
  4. MAGNESIUM OXIDE [Concomitant]
     Route: 048
  5. BAKTAR [Concomitant]
     Route: 048
  6. PURSENNID [Concomitant]
     Route: 048

REACTIONS (1)
  - SICK SINUS SYNDROME [None]
